FAERS Safety Report 6773637-2 (Version None)
Quarter: 2010Q2

REPORT INFORMATION
  Report Type: 
  Country: None (occurrence: None)
  Receive Date: 20100614
  Receipt Date: 20100601
  Transmission Date: 20101027
  Serious: Yes (Other)
  Sender: FDA-Public Use
  Company Number: 7006602

PATIENT
  Age: 29 Year
  Sex: Female

DRUGS (10)
  1. RECOMBINANT FOLLICLE STIMULATING HORMONE (RFSH) (FOLLITROIN ALFA) [Suspect]
     Indication: INFERTILITY
  2. LEUPROLIDE ACETATE [Concomitant]
  3. LHRH ANALOG (GONADORELIN ACETATE) [Concomitant]
  4. HUMAN MENOPAUSAL GONADOTROPIN (GONADOTROPINS) [Concomitant]
  5. GESTODEN (GESTODENE) [Concomitant]
  6. ETHYNYESTRADIOL (ESTRADIOL) [Concomitant]
  7. PROGESTOGEN (PROGESTOGENS) [Concomitant]
  8. HUMAN CHORIIONIC GONADOTROPIN (CHORIONIC GONADOTROPHIN) [Concomitant]
  9. ANTACIDE (ANTACIDS) [Concomitant]
  10. PROTON PUMP INHIBITORS (PROTON PUM INHIBITORS) [Concomitant]

REACTIONS (24)
  - ABDOMINAL PAIN [None]
  - ABDOMINAL REBOUND TENDERNESS [None]
  - BIOPSY CHORIONIC VILLOUS ABNORMAL [None]
  - CHORIOCARCINOMA [None]
  - DRUG EXPOSURE BEFORE PREGNANCY [None]
  - DRUG INEFFECTIVE [None]
  - ENDOMETRITIS [None]
  - HAEMORRHAGIC TUMOUR NECROSIS [None]
  - LUNG NEOPLASM [None]
  - MASS [None]
  - MENSTRUATION IRREGULAR [None]
  - METASTASIS [None]
  - MUSCLE RIGIDITY [None]
  - NAUSEA [None]
  - OVARIAN CYST [None]
  - POSTPARTUM HAEMORRHAGE [None]
  - RENAL DISORDER [None]
  - RETAINED PLACENTA OR MEMBRANES [None]
  - SPLEEN DISORDER [None]
  - SPLENIC RUPTURE [None]
  - TREATMENT FAILURE [None]
  - TWIN PREGNANCY [None]
  - VAGINAL HAEMORRHAGE [None]
  - VOMITING [None]
